FAERS Safety Report 17130595 (Version 1)
Quarter: 2019Q4

REPORT INFORMATION
  Report Type: Spontaneous
  Country: DE (occurrence: DE)
  Receive Date: 20191209
  Receipt Date: 20191209
  Transmission Date: 20200122
  Serious: Yes (Hospitalization)
  Sender: FDA-Public Use
  Company Number: DE-MYLANLABS-2019M1119939

PATIENT
  Age: 61 Year
  Sex: Male
  Weight: 90 kg

DRUGS (3)
  1. TORASEMIDE [Suspect]
     Active Substance: TORSEMIDE
     Indication: PRODUCT USED FOR UNKNOWN INDICATION
     Dosage: UNK
     Route: 065
  2. INDAPAMIDE. [Suspect]
     Active Substance: INDAPAMIDE
     Indication: PRODUCT USED FOR UNKNOWN INDICATION
     Dosage: UNK
     Route: 065
  3. ENTRESTO [Concomitant]
     Active Substance: SACUBITRIL\VALSARTAN
     Indication: PRODUCT USED FOR UNKNOWN INDICATION
     Dosage: 1 DF, BID (ONCE IN MORNING AND ONCE IN EVENING)
     Route: 048
     Dates: start: 20180716

REACTIONS (3)
  - Hypokalaemia [Recovered/Resolved]
  - Ventricular tachycardia [Recovered/Resolved]
  - Device inappropriate shock delivery [Unknown]

NARRATIVE: CASE EVENT DATE: 20190112
